FAERS Safety Report 9326032 (Version 1)
Quarter: 2013Q2

REPORT INFORMATION
  Report Type: Spontaneous
  Country: CN (occurrence: CN)
  Receive Date: 20130604
  Receipt Date: 20130604
  Transmission Date: 20140414
  Serious: Yes (Other)
  Sender: FDA-Public Use
  Company Number: CN-009507513-1306CHN000330

PATIENT
  Age: 80 Year
  Sex: Male

DRUGS (3)
  1. REMERON [Suspect]
     Indication: DEPRESSION
     Dosage: 30 MG, QD
     Route: 048
     Dates: start: 2012, end: 2012
  2. REMERON [Suspect]
     Dosage: 15 MG, QD
     Route: 048
     Dates: start: 2012, end: 201305
  3. REMERON [Suspect]
     Dosage: 30 MG, QD
     Route: 048
     Dates: start: 20130526

REACTIONS (4)
  - Suicidal ideation [Not Recovered/Not Resolved]
  - Depressive symptom [Not Recovered/Not Resolved]
  - Irritability [Not Recovered/Not Resolved]
  - Poor quality sleep [Not Recovered/Not Resolved]
